FAERS Safety Report 6747375-6 (Version None)
Quarter: 2010Q2

REPORT INFORMATION
  Report Type: 
  Country: None (occurrence: None)
  Receive Date: 20100528
  Receipt Date: 20100519
  Transmission Date: 20101027
  Serious: Yes (Life-Threatening, Hospitalization)
  Sender: FDA-Public Use
  Company Number: B0653541A

PATIENT
  Sex: Female

DRUGS (1)
  1. LAMICTAL [Suspect]
     Indication: BIPOLAR DISORDER
     Route: 048
     Dates: start: 20080927, end: 20081001

REACTIONS (9)
  - BODY TEMPERATURE INCREASED [None]
  - EYE IRRITATION [None]
  - GENITAL EROSION [None]
  - LYMPHADENOPATHY [None]
  - NASAL MUCOSAL DISORDER [None]
  - ORAL MUCOSA EROSION [None]
  - PRURITUS [None]
  - RASH MACULO-PAPULAR [None]
  - STEVENS-JOHNSON SYNDROME [None]
